FAERS Safety Report 6675181-X (Version None)
Quarter: 2010Q2

REPORT INFORMATION
  Report Type: 
  Country: None (occurrence: None)
  Receive Date: 20100409
  Receipt Date: 20100329
  Transmission Date: 20101027
  Serious: Yes (Other)
  Sender: FDA-Public Use
  Company Number: US-JNJFOC-20100400382

PATIENT
  Sex: Female

DRUGS (2)
  1. EXTRA STRENGTH TYLENOL [Suspect]
     Route: 048
  2. EXTRA STRENGTH TYLENOL [Suspect]
     Indication: ARTHRITIS
     Route: 048

REACTIONS (5)
  - CHOLECYSTECTOMY [None]
  - DIARRHOEA [None]
  - HAEMORRHOID OPERATION [None]
  - HYPERSENSITIVITY [None]
  - PRODUCT QUALITY ISSUE [None]
